FAERS Safety Report 6387988-7 (Version None)
Quarter: 2009Q4

REPORT INFORMATION
  Report Type: 
  Country: None (occurrence: None)
  Receive Date: 20091005
  Receipt Date: 20090925
  Transmission Date: 20100525
  Serious: Yes (Hospitalization)
  Sender: FDA-Public Use
  Company Number: FR-PFIZER INC-2009274093

PATIENT
  Age: 81 Year

DRUGS (3)
  1. IRINOTECAN HCL [Suspect]
     Dosage: UNK
  2. FLUOROURACIL [Suspect]
  3. FOLINIC ACID [Suspect]

REACTIONS (4)
  - GENERAL PHYSICAL HEALTH DETERIORATION [None]
  - NAUSEA [None]
  - VOMITING [None]
  - WEIGHT DECREASED [None]
